FAERS Safety Report 12455538 (Version 14)
Quarter: 2017Q3

REPORT INFORMATION
  Report Type: Report from Study
  Country: GB (occurrence: GB)
  Receive Date: 20160610
  Receipt Date: 20170821
  Transmission Date: 20171127
  Serious: Yes (Hospitalization, Other)
  Sender: FDA-Public Use
  Company Number: GB-ROCHE-1673913

PATIENT
  Age: 57 Year
  Sex: Male
  Weight: 85 kg

DRUGS (18)
  1. MST (MORPHINE) [Concomitant]
     Route: 048
     Dates: start: 20150812, end: 20151029
  2. POTASSIUM CHLORIDE. [Concomitant]
     Active Substance: POTASSIUM CHLORIDE
     Indication: BLOOD POTASSIUM DECREASED
     Dosage: DOSE: 20 OTHER
     Route: 042
     Dates: start: 20151201, end: 20151202
  3. SENNA [Concomitant]
     Active Substance: SENNA LEAF\SENNOSIDES\SENNOSIDES A AND B
     Route: 048
     Dates: start: 201511
  4. GLUCOSE [Concomitant]
     Active Substance: DEXTROSE
     Indication: HYPOGLYCAEMIA
     Dosage: SHORT INFUSION, FREQUENCY: OTHER
     Route: 042
     Dates: start: 20151202, end: 20151202
  5. PARACETAMOL [Concomitant]
     Active Substance: ACETAMINOPHEN
     Indication: PAIN
     Route: 048
     Dates: start: 20150601, end: 20160207
  6. ZOMORPH [Concomitant]
     Active Substance: MORPHINE SULFATE
     Indication: PAIN
     Route: 048
     Dates: start: 20151115, end: 20160207
  7. DALTEPARIN [Concomitant]
     Active Substance: DALTEPARIN
     Indication: DEEP VEIN THROMBOSIS
     Dosage: 5000 UNIT
     Route: 058
     Dates: start: 20151201, end: 20151208
  8. PARACETAMOL [Concomitant]
     Active Substance: ACETAMINOPHEN
     Route: 048
     Dates: end: 20160207
  9. DOXYCYCLINE. [Concomitant]
     Active Substance: DOXYCYCLINE
     Indication: PNEUMONIA
     Route: 048
     Dates: start: 20151202, end: 20151204
  10. SODIUM CHLORIDE. [Concomitant]
     Active Substance: SODIUM CHLORIDE
     Indication: BLOOD SODIUM DECREASED
     Route: 042
     Dates: start: 20151201, end: 20151201
  11. SENNA [Concomitant]
     Active Substance: SENNA LEAF\SENNOSIDES\SENNOSIDES A AND B
     Indication: CONSTIPATION
     Route: 048
     Dates: start: 20160117, end: 20160123
  12. ATEZOLIZUMAB. [Suspect]
     Active Substance: ATEZOLIZUMAB
     Indication: BLADDER TRANSITIONAL CELL CARCINOMA
     Dosage: MOST RECENT DOSE 1200 MG OF ATEZOLIZUMAB WAS ADMINISTERED ON 06/NOV/2015
     Route: 042
     Dates: start: 20150814
  13. ORAMORPH [Concomitant]
     Active Substance: MORPHINE SULFATE
     Indication: PAIN
     Route: 048
     Dates: start: 20150601, end: 20151126
  14. MST (MORPHINE) [Concomitant]
     Indication: PAIN
     Route: 048
     Dates: start: 20151029
  15. POTASSIUM CHLORIDE. [Concomitant]
     Active Substance: POTASSIUM CHLORIDE
     Dosage: DOSE: 40 OTHER
     Route: 042
     Dates: start: 20151201, end: 20151202
  16. AMITRIPTYLINE [Concomitant]
     Active Substance: AMITRIPTYLINE
     Indication: PAIN
     Route: 048
     Dates: start: 20150812
  17. DOXYCYCLINE. [Concomitant]
     Active Substance: DOXYCYCLINE
     Indication: INFECTION
     Route: 048
     Dates: start: 20160119, end: 20160125
  18. DALTEPARIN [Concomitant]
     Active Substance: DALTEPARIN
     Dosage: 5000 UNITS
     Route: 058
     Dates: start: 20160115, end: 20160120

REACTIONS (4)
  - Anaemia [Recovered/Resolved]
  - Diabetic ketoacidosis [Recovered/Resolved]
  - Colonic fistula [Not Recovered/Not Resolved]
  - Diabetes mellitus [Not Recovered/Not Resolved]

NARRATIVE: CASE EVENT DATE: 20151113
